FAERS Safety Report 8529707-1 (Version None)
Quarter: 2012Q3

REPORT INFORMATION
  Report Type: 
  Country: None (occurrence: None)
  Receive Date: 20120723
  Receipt Date: 20120629
  Transmission Date: 20120928
  Serious: Yes (Hospitalization, Other)
  Sender: FDA-Public Use
  Company Number: CA-SANOFI-AVENTIS-200710507GDDC

PATIENT
  Age: 72 Year
  Sex: Male

DRUGS (9)
  1. OPTIPEN [Suspect]
     Indication: DIABETES MELLITUS
  2. CLOPIDOGREL [Concomitant]
     Indication: PROPHYLAXIS
  3. LANTUS [Suspect]
     Indication: DIABETES MELLITUS
     Dosage: DOSE:10 UNIT(S)
     Route: 058
     Dates: start: 20041108, end: 20061129
  4. PLACEBO [Suspect]
     Dosage: DOSE AS USED: UNK
     Route: 048
     Dates: start: 20041108
  5. ACETYLSALICYLIC ACID ENTERIC COATED [Concomitant]
     Indication: PROPHYLAXIS
  6. RAMIPRIL [Concomitant]
     Dates: start: 20041101
  7. AMLODIPINE [Concomitant]
  8. ACEBUTOLOL [Concomitant]
  9. ATORVASTATIN [Concomitant]
     Indication: LIPIDS INCREASED

REACTIONS (3)
  - HYPERHIDROSIS [None]
  - MYOCARDIAL INFARCTION [None]
  - INCOHERENT [None]
